FAERS Safety Report 9770725 (Version 2)
Quarter: 2014Q2

REPORT INFORMATION
  Report Type: Spontaneous
  Country: US (occurrence: US)
  Receive Date: 20131218
  Receipt Date: 20140404
  Transmission Date: 20141212
  Serious: Yes (Other)
  Sender: FDA-Public Use
  Company Number: US-BAYER-2013-149934

PATIENT
  Age: 54 Year
  Sex: Female

DRUGS (5)
  1. AVELOX [Suspect]
     Indication: SINUSITIS
     Dosage: 400 MG, UNK
     Dates: start: 20070816, end: 20070830
  2. ACYCLOVIR [ACICLOVIR] [Concomitant]
     Indication: HERPES VIRUS INFECTION
  3. AMITRIPTYLINE [Concomitant]
     Indication: INSOMNIA
  4. AMITRIPTYLINE [Concomitant]
     Indication: MIGRAINE
  5. PREDNISONE [Concomitant]
     Indication: SINUSITIS

REACTIONS (28)
  - Visual impairment [None]
  - Uveitis [None]
  - Glaucoma [None]
  - Anterior chamber inflammation [None]
  - Vitritis [None]
  - Iridocyclitis [None]
  - Ciliary body degeneration [None]
  - Vitreous detachment [None]
  - Normal tension glaucoma [None]
  - Pigmentary glaucoma [None]
  - Emotional distress [None]
  - Headache [None]
  - Eye inflammation [None]
  - Pigment dispersion syndrome [None]
  - Iris hypopigmentation [None]
  - Iris transillumination defect [None]
  - Eye swelling [None]
  - Deposit eye [None]
  - Intraocular pressure test abnormal [None]
  - Photophobia [None]
  - Pain [None]
  - Anxiety [None]
  - Anhedonia [None]
  - Quality of life decreased [None]
  - Injury [None]
  - Mydriasis [None]
  - Insomnia [None]
  - Dry eye [None]
